FAERS Safety Report 25107244 (Version 1)
Quarter: 2025Q1

REPORT INFORMATION
  Report Type: Spontaneous
  Country: RU (occurrence: RU)
  Receive Date: 20250321
  Receipt Date: 20250321
  Transmission Date: 20250409
  Serious: Yes (Hospitalization, Other)
  Sender: SANOFI AVENTIS
  Company Number: RU-SA-2025SA064245

PATIENT
  Age: 11 Year
  Sex: Male

DRUGS (3)
  1. DUPIXENT [Suspect]
     Active Substance: DUPILUMAB
     Indication: Dermatitis atopic
     Route: 058
     Dates: start: 20230426, end: 20230426
  2. DUPIXENT [Suspect]
     Active Substance: DUPILUMAB
     Dosage: 200 MG, QOW
     Route: 058
     Dates: start: 2023
  3. DUPIXENT [Suspect]
     Active Substance: DUPILUMAB
     Dosage: 300 MG, QOW
     Route: 058
     Dates: start: 20250121

REACTIONS (15)
  - Erythema multiforme [Unknown]
  - Blepharitis [Recovering/Resolving]
  - Condition aggravated [Recovering/Resolving]
  - Cheilitis [Unknown]
  - Condition aggravated [Unknown]
  - Product dose omission issue [Unknown]
  - Varicella [Unknown]
  - Skin infection [Unknown]
  - Respiratory tract infection [Unknown]
  - Ear infection [Unknown]
  - Rash vesicular [Unknown]
  - Condition aggravated [Unknown]
  - Helminthic infection [Unknown]
  - Conjunctivitis [Unknown]
  - Eosinophilia [Unknown]

NARRATIVE: CASE EVENT DATE: 20230511
